FAERS Safety Report 7792200-8 (Version None)
Quarter: 2011Q4

REPORT INFORMATION
  Report Type: 
  Country: None (occurrence: None)
  Receive Date: 20111003
  Receipt Date: 20111003
  Transmission Date: 20120403
  Serious: Yes (Other)
  Sender: FDA-Public Use
  Company Number: None

PATIENT
  Age: 46 Year
  Sex: Female
  Weight: 83.914 kg

DRUGS (1)
  1. MONISTAT [Suspect]
     Indication: VULVOVAGINAL PRURITUS
     Dates: start: 20110928, end: 20110928

REACTIONS (6)
  - VULVOVAGINAL BURNING SENSATION [None]
  - VULVOVAGINAL PRURITUS [None]
  - VAGINAL MUCOSAL BLISTERING [None]
  - SKIN DISCOLOURATION [None]
  - VULVOVAGINAL ERYTHEMA [None]
  - VULVOVAGINAL PAIN [None]
